FAERS Safety Report 8494518-2 (Version None)
Quarter: 2012Q2

REPORT INFORMATION
  Report Type: 
  Country: None (occurrence: None)
  Receive Date: 20120627
  Receipt Date: 20120615
  Transmission Date: 20120825
  Serious: Yes (Other)
  Sender: FDA-Public Use
  Company Number: JP-2012-15538

PATIENT
  Sex: Female

DRUGS (2)
  1. BFLUID (AMINO ACIDS NOS, ELECTROLYTES NOS, GLUCOSE, THIAMINE HYDROCHLO [Suspect]
     Dosage: IV DRIP
     Route: 041
     Dates: start: 20120619
  2. SAMSCA [Suspect]
     Dosage: UNK, ORAL
     Route: 048

REACTIONS (1)
  - BLOOD UREA INCREASED [None]
